FAERS Safety Report 6524158-3 (Version None)
Quarter: 2009Q4

REPORT INFORMATION
  Report Type: 
  Country: None (occurrence: None)
  Receive Date: 20091230
  Receipt Date: 20091230
  Transmission Date: 20100525
  Serious: No
  Sender: FDA-Public Use
  Company Number: None

PATIENT
  Age: 45 Year
  Sex: Female
  Weight: 58.9676 kg

DRUGS (5)
  1. COLD REMEDY RAPID MELTS WITH VITAMIN C [Suspect]
     Dosage: QID FOR 7 DAYS
     Dates: start: 20091122, end: 20091129
  2. COLD REMEDY LIQUI-LOZ [Suspect]
     Dosage: QID FOR 7 DAYS
     Dates: start: 20091122, end: 20091129
  3. VENLAFAXINE [Concomitant]
  4. OXYBUTYNIN CHLORIDE [Concomitant]
  5. LOVASTATIN [Concomitant]

REACTIONS (2)
  - AGEUSIA [None]
  - HYPOGEUSIA [None]
